FAERS Safety Report 18497575 (Version 1)
Quarter: 2020Q4

REPORT INFORMATION
  Report Type: Spontaneous
  Country: GB (occurrence: GB)
  Receive Date: 20201112
  Receipt Date: 20201112
  Transmission Date: 20210114
  Serious: Yes (Death)
  Sender: FDA-Public Use
  Company Number: GB-BIOVITRUM-2020GB6075

PATIENT
  Sex: Male

DRUGS (1)
  1. KINERET [Suspect]
     Active Substance: ANAKINRA
     Indication: HAEMOPHAGOCYTIC LYMPHOHISTIOCYTOSIS
     Route: 065

REACTIONS (2)
  - Off label use [Recovered/Resolved]
  - Fungal sepsis [Fatal]
